FAERS Safety Report 9382496 (Version 1)
Quarter: 2013Q3

REPORT INFORMATION
  Report Type: Spontaneous
  Country: DK (occurrence: DK)
  Receive Date: 20130703
  Receipt Date: 20130703
  Transmission Date: 20140515
  Serious: Yes (Other)
  Sender: FDA-Public Use
  Company Number: DK-UCBSA-090378

PATIENT
  Sex: 0

DRUGS (1)
  1. CERTOLIZUMAB PEGOL [Suspect]

REACTIONS (1)
  - Systemic lupus erythematosus [Unknown]
